FAERS Safety Report 9290470 (Version 1)
Quarter: 2012Q4

REPORT INFORMATION
  Report Type: Spontaneous
  Country: US (occurrence: None)
  Receive Date: 20121004
  Receipt Date: 20121004
  Transmission Date: 20130627
  Serious: Yes (Hospitalization, Other)
  Sender: FDA-Public Use
  Company Number: VAL_00858_2012

PATIENT
  Sex: Female
  Weight: 163.02 kg

DRUGS (7)
  1. METOPROLOL TARTRATE [Suspect]
     Indication: VENTRICULAR EXTRASYSTOLES
     Route: 048
     Dates: start: 2012
  2. METOPROLOL TARTRATE [Suspect]
     Indication: VENTRICULAR EXTRASYSTOLES
     Dates: start: 2012
  3. LIPITOR [Concomitant]
  4. BABY ASPIRIN [Concomitant]
  5. LISINOPRIL [Concomitant]
  6. ACETYLSALICYLIC ACID [Concomitant]
  7. FNG [Concomitant]

REACTIONS (7)
  - Product substitution issue [None]
  - Cardiac flutter [None]
  - Palpitations [None]
  - Heart rate increased [None]
  - Ventricular extrasystoles [None]
  - Supraventricular extrasystoles [None]
  - Wrong technique in drug usage process [None]
